FAERS Safety Report 18361811 (Version 1)
Quarter: 2020Q4

REPORT INFORMATION
  Report Type: Report from Study
  Country: US (occurrence: US)
  Receive Date: 20201008
  Receipt Date: 20201008
  Transmission Date: 20210114
  Serious: Yes (Hospitalization)
  Sender: FDA-Public Use
  Company Number: US-BAYER-2020-214222

PATIENT
  Age: 69 Year
  Sex: Female
  Weight: 51.25 kg

DRUGS (3)
  1. ADEMPAS [Suspect]
     Active Substance: RIOCIGUAT
     Indication: PULMONARY ARTERIAL HYPERTENSION
     Dosage: 2.5 MG, TID
     Route: 048
     Dates: start: 2020
  2. ADEMPAS [Suspect]
     Active Substance: RIOCIGUAT
     Indication: PULMONARY ARTERIAL HYPERTENSION
     Dosage: UNK
     Dates: start: 20200511
  3. DILTIAZEM. [Concomitant]
     Active Substance: DILTIAZEM
     Dosage: UNK

REACTIONS (3)
  - Dehydration [None]
  - Constipation [None]
  - Laboratory test abnormal [None]

NARRATIVE: CASE EVENT DATE: 202009
